FAERS Safety Report 17412192 (Version 1)
Quarter: 2020Q1

REPORT INFORMATION
  Report Type: Spontaneous
  Country: IN (occurrence: IN)
  Receive Date: 20200213
  Receipt Date: 20200213
  Transmission Date: 20200409
  Serious: Yes (Hospitalization)
  Sender: FDA-Public Use
  Company Number: IN-QUAGEN PHARMA LLC-2020QUALIT00031

PATIENT
  Age: 33 Year
  Sex: Male

DRUGS (4)
  1. MANNITOL. [Interacting]
     Active Substance: MANNITOL
  2. CYPROHEPTADINE HYDROCHLORIDE ORAL SOLUTION [Suspect]
     Active Substance: CYPROHEPTADINE HYDROCHLORIDE
  3. DEXAMETHASONE. [Suspect]
     Active Substance: DEXAMETHASONE
  4. POTASSIUM CHLORIDE. [Interacting]
     Active Substance: POTASSIUM CHLORIDE

REACTIONS (6)
  - Electrocardiogram QT prolonged [Recovered/Resolved]
  - Tachypnoea [Recovered/Resolved]
  - Intentional product misuse [Recovered/Resolved]
  - Hypokalaemia [Recovered/Resolved]
  - Quadriparesis [Recovered/Resolved]
  - Weight increased [Unknown]
